FAERS Safety Report 5749252-6 (Version None)
Quarter: 2008Q2

REPORT INFORMATION
  Report Type: 
  Country: None (occurrence: None)
  Receive Date: 20080527
  Receipt Date: 20080515
  Transmission Date: 20081010
  Serious: Yes (Other)
  Sender: FDA-Public Use
  Company Number: FR-ROCHE-562430

PATIENT
  Sex: Female
  Weight: 57 kg

DRUGS (7)
  1. BONIVA [Suspect]
     Indication: OSTEOPOROSIS
     Route: 048
     Dates: start: 20070922
  2. MONURIL [Concomitant]
     Route: 065
  3. VASTAREL [Concomitant]
     Route: 048
     Dates: start: 20010501
  4. GINKOR FORT [Concomitant]
     Route: 048
     Dates: start: 20010501
  5. GINKOR FORT [Concomitant]
     Route: 048
     Dates: start: 20010501
  6. GINKOR FORT [Concomitant]
     Route: 048
     Dates: start: 20010501
  7. TAHOR [Concomitant]
     Route: 048
     Dates: start: 20000901

REACTIONS (4)
  - DYSPEPSIA [None]
  - HAEMATURIA [None]
  - HYPEROXALURIA [None]
  - OSTEITIS [None]
